FAERS Safety Report 4702428-9 (Version None)
Quarter: 2005Q2

REPORT INFORMATION
  Report Type: 
  Country: None (occurrence: None)
  Receive Date: 20050629
  Receipt Date: 20050613
  Transmission Date: 20051028
  Serious: No
  Sender: FDA-Public Use
  Company Number: GB-BOEHRINGER INGELHEIM PHARMACEUTICALS, INC.-2005-UK-01051UK

PATIENT
  Age: 63 Year
  Sex: Female

DRUGS (6)
  1. DIXARIT (00015/5014R) [Suspect]
     Indication: MENOPAUSAL SYMPTOMS
     Dates: start: 20050517, end: 20050614
  2. DICLOFENAC [Concomitant]
     Indication: ARTHRITIS
     Route: 048
  3. SIMVASTATIN [Concomitant]
     Indication: BLOOD CHOLESTEROL INCREASED
     Route: 048
     Dates: start: 20050510
  4. RABEPRAZOLE SODIUM [Concomitant]
     Route: 048
     Dates: start: 20050512
  5. WARFARIN [Concomitant]
     Indication: ATRIAL FIBRILLATION
     Dosage: VARIABLE
     Route: 048
     Dates: start: 20050524
  6. WARFARIN [Concomitant]
     Indication: CEREBROVASCULAR ACCIDENT

REACTIONS (4)
  - ATRIAL FIBRILLATION [None]
  - CHEST PAIN [None]
  - DIZZINESS [None]
  - PALPITATIONS [None]
